FAERS Safety Report 7805282-1 (Version None)
Quarter: 2011Q4

REPORT INFORMATION
  Report Type: 
  Country: None (occurrence: None)
  Receive Date: 20111010
  Receipt Date: 20110928
  Transmission Date: 20120403
  Serious: Yes (Hospitalization, Other)
  Sender: FDA-Public Use
  Company Number: FR-CELGENEUS-056-21880-11061025

PATIENT
  Sex: Female

DRUGS (30)
  1. ACETAMINOPHEN [Concomitant]
     Dosage: 4 GRAM
     Route: 048
     Dates: start: 20110624
  2. AMOXICILLIN TRIHYDRATE [Concomitant]
     Indication: ANTI-INFECTIVE THERAPY
     Dosage: 2 GRAM
     Route: 048
     Dates: start: 20110624, end: 20110707
  3. BORTEZOMIB [Suspect]
     Route: 065
     Dates: start: 20110526
  4. INNOHEP [Concomitant]
     Route: 065
     Dates: start: 20110720, end: 20110730
  5. VALACICLOVIR [Concomitant]
     Indication: PROPHYLAXIS
     Dosage: 2 TABLET
     Route: 048
     Dates: start: 20110523, end: 20110705
  6. OXAZEPAM [Concomitant]
     Indication: ANXIOLYTIC THERAPY
     Route: 048
     Dates: start: 20110607
  7. ACUPAN [Concomitant]
     Indication: PAIN
     Dosage: 4 GRAM
     Route: 065
     Dates: start: 20110418, end: 20110518
  8. LEXOMIL [Concomitant]
     Indication: ANXIETY
     Route: 048
     Dates: start: 20110523
  9. VALACYCLOVIR HYDROCHLORIDE [Concomitant]
     Indication: PROPHYLAXIS
     Dosage: 1000 MILLIGRAM
     Route: 065
     Dates: start: 20110709
  10. NEXIUM [Concomitant]
     Dosage: 1 TABLESPOON
     Route: 065
     Dates: start: 20110614, end: 20110705
  11. REVLIMID [Suspect]
     Route: 048
     Dates: start: 20110523
  12. REVLIMID [Suspect]
     Route: 048
     Dates: start: 20110526
  13. BORTEZOMIB [Suspect]
     Dosage: 1 MILLIGRAM
     Route: 050
     Dates: start: 20110709
  14. DEXAMETHASONE [Suspect]
     Dosage: 20 MILLIGRAM
     Route: 065
     Dates: start: 20110523
  15. RED BLOOD CELLS [Concomitant]
     Route: 041
     Dates: start: 20110608, end: 20110608
  16. ZARZIO [Concomitant]
     Indication: APHASIA
     Route: 065
  17. XANAX [Concomitant]
     Route: 048
     Dates: start: 20110607
  18. ACETAMINOPHEN [Concomitant]
     Indication: PAIN
     Dosage: 4 GRAM
     Route: 048
     Dates: start: 20110418, end: 20110518
  19. INNOHEP [Concomitant]
     Route: 050
     Dates: start: 20110614
  20. AMOXICILLIN [Concomitant]
     Indication: PROPHYLAXIS
     Dosage: 2 GRAM
     Route: 048
     Dates: start: 20110523
  21. OXYCONTIN LP [Concomitant]
     Indication: PAIN
     Dosage: 30 MILLIGRAM
     Route: 065
     Dates: start: 20110523
  22. OXYCODONE HCL [Concomitant]
     Dosage: 5 MILLIGRAM
     Route: 048
     Dates: start: 20110607
  23. DEXAMETHASONE [Suspect]
     Dosage: 20 MILLIGRAM
     Route: 065
     Dates: start: 20110709
  24. HEPARIN [Concomitant]
     Indication: PULMONARY EMBOLISM
     Dosage: 26400 IU (INTERNATIONAL UNIT)
     Route: 041
     Dates: start: 20110607, end: 20110616
  25. SOLU-MEDROL [Concomitant]
     Indication: HYPERTENSION
     Dosage: 80 MILLIGRAM
     Route: 041
     Dates: start: 20110711
  26. BACTRIM DS [Concomitant]
     Indication: PROPHYLAXIS
     Dosage: .4286 TABLET
     Route: 048
     Dates: start: 20110523
  27. REVLIMID [Suspect]
     Dosage: 20 MILLIGRAM
     Route: 048
     Dates: start: 20110709
  28. BORTEZOMIB [Suspect]
     Route: 065
     Dates: start: 20110523
  29. DEXAMETHASONE [Suspect]
     Dosage: 20 MILLIGRAM
     Route: 065
     Dates: start: 20110526
  30. IMOVANE [Concomitant]
     Indication: SLEEP DISORDER
     Dosage: 7.5 UNKNOWN
     Route: 048
     Dates: start: 20110607

REACTIONS (2)
  - SEPSIS [None]
  - ABSCESS [None]
